FAERS Safety Report 13290641 (Version 1)
Quarter: 2017Q1

REPORT INFORMATION
  Report Type: Other
  Country: CA (occurrence: CA)
  Receive Date: 20170302
  Receipt Date: 20170302
  Transmission Date: 20170428
  Serious: Yes (Other)
  Sender: FDA-Public Use
  Company Number: CA-APOTEX-2017AP007262

PATIENT
  Age: 87 Year
  Sex: Male

DRUGS (1)
  1. APO-GALANTAMINE [Suspect]
     Active Substance: GALANTAMINE
     Indication: DEMENTIA ALZHEIMER^S TYPE
     Dosage: 24 MG, QD
     Route: 048

REACTIONS (1)
  - Dementia Alzheimer^s type [Unknown]
